FAERS Safety Report 7955753-2 (Version None)
Quarter: 2011Q4

REPORT INFORMATION
  Report Type: 
  Country: None (occurrence: None)
  Receive Date: 20111204
  Receipt Date: 20080508
  Transmission Date: 20120403
  Serious: Yes (Other)
  Sender: FDA-Public Use
  Company Number: PHHY2008MX043749

PATIENT
  Age: 67 Year
  Sex: Female

DRUGS (1)
  1. TEGRETOL [Suspect]
     Indication: DEPRESSION
     Dosage: 200 MG, QD
     Route: 048
     Dates: start: 20060401

REACTIONS (1)
  - ROAD TRAFFIC ACCIDENT [None]
